FAERS Safety Report 6793711-4 (Version None)
Quarter: 2010Q2

REPORT INFORMATION
  Report Type: 
  Country: None (occurrence: None)
  Receive Date: 20100624
  Receipt Date: 20090302
  Transmission Date: 20101027
  Serious: No
  Sender: FDA-Public Use
  Company Number: US-PFIZER INC-2009157723

PATIENT
  Sex: Female
  Weight: 69.4 kg

DRUGS (6)
  1. GEODON [Suspect]
     Indication: HALLUCINATION, AUDITORY
     Dosage: 20 MG, 1X/DAY
     Route: 048
     Dates: start: 20050901
  2. KLONOPIN [Concomitant]
     Dosage: UNK
     Route: 048
  3. LAMICTAL [Concomitant]
     Dosage: UNK
     Route: 048
  4. CELEXA [Concomitant]
     Dosage: UNK
     Route: 048
  5. LOPERAMIDE HYDROCHLORIDE [Concomitant]
     Dosage: UNK
     Route: 048
  6. BENTYL [Concomitant]
     Dosage: UNK
     Route: 048

REACTIONS (7)
  - AGITATION [None]
  - DRUG DOSE OMISSION [None]
  - FEELING HOT [None]
  - GLOMERULAR FILTRATION RATE DECREASED [None]
  - HYPERHIDROSIS [None]
  - SOMNOLENCE [None]
  - WEIGHT DECREASED [None]
